FAERS Safety Report 18619746 (Version 2)
Quarter: 2023Q4

REPORT INFORMATION
  Report Type: Spontaneous
  Country: US (occurrence: US)
  Receive Date: 20201215
  Receipt Date: 20231128
  Transmission Date: 20240110
  Serious: No
  Sender: FDA-Public Use
  Company Number: US-PFIZER INC-2020491560

PATIENT
  Age: 71 Year

DRUGS (1)
  1. PREMARIN [Suspect]
     Active Substance: ESTROGENS, CONJUGATED
     Indication: Oestrogen deficiency
     Dosage: 0.625 MG, CYCLIC (TAKE DAILY FOR 21 DAYS THEN DO NOT TAKE FOR 7 DAYS)
     Route: 048

REACTIONS (2)
  - Sinusitis [Unknown]
  - Off label use [Unknown]

NARRATIVE: CASE EVENT DATE: 20200101
